FAERS Safety Report 4986224-3 (Version None)
Quarter: 2006Q2

REPORT INFORMATION
  Report Type: 
  Country: None (occurrence: None)
  Receive Date: 20060428
  Receipt Date: 20050714
  Transmission Date: 20061013
  Serious: Yes (Death)
  Sender: FDA-Public Use
  Company Number: US-MERCK-0507USA02048

PATIENT
  Age: 56 Year
  Sex: Male
  Weight: 93 kg

DRUGS (2)
  1. VIOXX [Suspect]
     Indication: INFLAMMATION
     Route: 048
     Dates: start: 20010101, end: 20040301
  2. VIOXX [Suspect]
     Indication: PAIN
     Route: 048
     Dates: start: 20010101, end: 20040301

REACTIONS (7)
  - DEATH [None]
  - EMPHYSEMA [None]
  - FIBULA FRACTURE [None]
  - FRACTURE NONUNION [None]
  - NERVE COMPRESSION [None]
  - RENAL CYST [None]
  - TIBIA FRACTURE [None]
